FAERS Safety Report 6152689-7 (Version None)
Quarter: 2009Q2

REPORT INFORMATION
  Report Type: 
  Country: None (occurrence: None)
  Receive Date: 20090413
  Receipt Date: 20090331
  Transmission Date: 20091009
  Serious: Yes (Hospitalization)
  Sender: FDA-Public Use
  Company Number: KR-ROCHE-625171

PATIENT
  Sex: Female
  Weight: 42 kg

DRUGS (9)
  1. CAPECITABINE [Suspect]
     Route: 048
     Dates: start: 20070403, end: 20070417
  2. CAPECITABINE [Suspect]
     Route: 048
     Dates: start: 20070504, end: 20070518
  3. PYRIDOXINE [Concomitant]
     Route: 048
     Dates: start: 20070330, end: 20070528
  4. METOCLOPRAMIDE [Concomitant]
     Route: 048
     Dates: start: 20070330, end: 20070407
  5. CIPROFLOXACIN [Concomitant]
     Route: 048
     Dates: start: 20070403, end: 20070426
  6. ZOPICLON [Concomitant]
     Route: 048
     Dates: start: 20070423, end: 20070526
  7. GEMCITABINE [Concomitant]
     Route: 042
     Dates: start: 20070403, end: 20070410
  8. GEMCITABINE [Concomitant]
     Route: 042
     Dates: start: 20070304, end: 20070311
  9. DOPAMINE HCL [Concomitant]
     Route: 042
     Dates: start: 20080510, end: 20080512

REACTIONS (2)
  - PNEUMONIA [None]
  - SEPTIC SHOCK [None]
